FAERS Safety Report 7404795-4 (Version None)
Quarter: 2011Q2

REPORT INFORMATION
  Report Type: 
  Country: None (occurrence: None)
  Receive Date: 20110411
  Receipt Date: 20110214
  Transmission Date: 20111010
  Serious: Yes (Other)
  Sender: FDA-Public Use
  Company Number: US-BAYER-201042058NA

PATIENT
  Age: 18 Year
  Sex: Female
  Weight: 95.238 kg

DRUGS (25)
  1. YASMIN [Suspect]
     Indication: ACNE
  2. YASMIN [Suspect]
     Indication: PREMENSTRUAL SYNDROME
  3. PROMETHAZINE [Concomitant]
     Indication: VOMITING
     Dosage: UNK
     Route: 048
  4. PAMINE FORTE [Concomitant]
  5. OMEPRAZOLE [Concomitant]
     Dosage: UNK UNK, BID
  6. PHENERGAN HCL [Concomitant]
  7. OCELLA [Suspect]
     Indication: ACNE
     Dosage: UNK UNK, QD
     Route: 048
     Dates: start: 20080813, end: 20090204
  8. SCOPOLAMINE [Concomitant]
  9. BENTYL [Concomitant]
     Dosage: UNK UNK, TID
  10. ATIVAN [Concomitant]
  11. AMOXICILLIN [Concomitant]
  12. DIFLUCAN [Concomitant]
     Dosage: UNK
     Route: 048
  13. YAZ [Suspect]
     Indication: ACNE
  14. LORTAB [Concomitant]
     Dosage: UNK UNK, BID
  15. ZOFRAN [Concomitant]
  16. SEPTRA DS [Concomitant]
  17. NEURONTIN [Concomitant]
  18. YAZ [Suspect]
     Indication: CONTRACEPTION
     Dosage: UNK UNK, QD
     Dates: start: 20090304, end: 20091230
  19. OCELLA [Suspect]
     Indication: PREMENSTRUAL SYNDROME
  20. YAZ [Suspect]
     Indication: PREMENSTRUAL SYNDROME
  21. YASMIN [Suspect]
     Indication: CONTRACEPTION
     Dosage: UNK UNK, QD
     Route: 048
     Dates: start: 20070402, end: 20080813
  22. GARAMYCIN [Concomitant]
  23. OCELLA [Suspect]
     Indication: CONTRACEPTION
  24. CLARITHROMYCIN [Concomitant]
     Dosage: UNK UNK, BID
  25. FLEXERIL [Concomitant]

REACTIONS (4)
  - ABDOMINAL PAIN [None]
  - CHOLECYSTECTOMY [None]
  - CHOLECYSTITIS [None]
  - GALLBLADDER DISORDER [None]
